FAERS Safety Report 4713818-2 (Version None)
Quarter: 2005Q3

REPORT INFORMATION
  Report Type: 
  Country: None (occurrence: None)
  Receive Date: 20050712
  Receipt Date: 20050629
  Transmission Date: 20060218
  Serious: Yes (Other)
  Sender: FDA-Public Use
  Company Number: 2005094666

PATIENT
  Sex: Male
  Weight: 72.5755 kg

DRUGS (7)
  1. VIAGRA [Suspect]
     Indication: ERECTILE DYSFUNCTION
     Dosage: 50 MG (50 MG,AS NECESSARY),ORAL
     Route: 048
  2. LIPITOR [Suspect]
     Indication: ILL-DEFINED DISORDER
     Dates: start: 20041118
  3. CELEBREX [Suspect]
     Indication: ARTHRITIS
     Dosage: (200 MG,1 IN 1 D)
     Dates: end: 20040901
  4. NITROGLYCERIN [Suspect]
     Indication: CHEST PAIN
     Dosage: SUBLINGUAL
     Route: 060
  5. TAMSULOSIN HYDROCHLORIDE (TAMSULOSIN HYDROCHLORIDE) [Concomitant]
  6. VITAMINS (VITAMINS) [Concomitant]
  7. LISINOPRIL [Concomitant]

REACTIONS (4)
  - BLOOD CHOLESTEROL INCREASED [None]
  - CHEST PAIN [None]
  - CORONARY ARTERY OCCLUSION [None]
  - HIGH DENSITY LIPOPROTEIN DECREASED [None]
